FAERS Safety Report 9267940 (Version 1)
Quarter: 2013Q2

REPORT INFORMATION
  Report Type: Spontaneous
  Country: US (occurrence: US)
  Receive Date: 20130502
  Receipt Date: 20130502
  Transmission Date: 20140414
  Serious: Yes (Hospitalization)
  Sender: FDA-Public Use
  Company Number: US-ALEXION-A201201174

PATIENT
  Sex: Female

DRUGS (8)
  1. SOLIRIS 300MG [Suspect]
     Indication: PAROXYSMAL NOCTURNAL HAEMOGLOBINURIA
     Dosage: UNK, QWK
     Route: 042
     Dates: start: 200810, end: 200811
  2. SOLIRIS 300MG [Suspect]
     Dosage: 900 MG, Q2W
     Route: 048
     Dates: start: 200811
  3. NEXIUM [Concomitant]
     Indication: GASTROOESOPHAGEAL REFLUX DISEASE
     Dosage: 40 MG, QD
  4. FOLIC ACID [Concomitant]
     Indication: PAROXYSMAL NOCTURNAL HAEMOGLOBINURIA
     Dosage: 1 MG, QD
  5. DILAUDID [Concomitant]
     Indication: PAIN
     Dosage: 2 MG, Q4HR PRN
  6. ATIVAN [Concomitant]
     Indication: ANXIETY
     Dosage: 1 MG, Q4-6 HR
  7. MS CONTIN [Concomitant]
     Indication: PAIN
     Dosage: 60 MG, BID
  8. COUMADIN [Concomitant]
     Indication: MESENTERIC VEIN THROMBOSIS
     Dosage: AS DIRECTED

REACTIONS (5)
  - Skin haemorrhage [Recovered/Resolved]
  - Pyrexia [Recovered/Resolved]
  - Toothache [Not Recovered/Not Resolved]
  - Anxiety [Recovered/Resolved]
  - Abdominal pain [Recovered/Resolved]
